FAERS Safety Report 10716651 (Version 2)
Quarter: 2015Q1

REPORT INFORMATION
  Report Type: Spontaneous
  Country: US (occurrence: US)
  Receive Date: 20150116
  Receipt Date: 20150120
  Transmission Date: 20150721
  Serious: Yes (Other)
  Sender: FDA-Public Use
  Company Number: US-BAYER-2015-005691

PATIENT
  Sex: Female

DRUGS (2)
  1. MIRENA [Suspect]
     Active Substance: LEVONORGESTREL
     Dosage: 20 ?G/D, CONT
     Route: 015
  2. MIRENA [Suspect]
     Active Substance: LEVONORGESTREL
     Dosage: 20 ?G/D, CONT
     Route: 015

REACTIONS (12)
  - Feeling abnormal [None]
  - Malaise [None]
  - Hyperhidrosis [None]
  - Procedural pain [None]
  - Visual impairment [None]
  - Influenza like illness [Recovered/Resolved]
  - Device malfunction [None]
  - Crying [None]
  - Pelvic pain [None]
  - Dizziness [None]
  - Post procedural haemorrhage [None]
  - Device difficult to use [None]
